FAERS Safety Report 19386197 (Version 2)
Quarter: 2021Q2

REPORT INFORMATION
  Report Type: Spontaneous
  Country: US (occurrence: US)
  Receive Date: 20210608
  Receipt Date: 20210615
  Transmission Date: 20210717
  Serious: Yes (Other)
  Sender: FDA-Public Use
  Company Number: US-PFIZER INC-2021594808

PATIENT
  Age: 15 Year
  Sex: Male

DRUGS (2)
  1. BUPIVACAINE. [Suspect]
     Active Substance: BUPIVACAINE
     Indication: TOOTH EXTRACTION
     Dosage: 10 ML (10 ML OF 1.3% LIPOSOMAL BUPIVACAINE INTRAORALLY)
  2. BUPIVACAINE HYDROCHLORIDE/EPINEPHRINE [Suspect]
     Active Substance: BUPIVACAINE HYDROCHLORIDE\EPINEPHRINE
     Indication: TOOTH EXTRACTION
     Dosage: 14 ML (14 ML OF 0.25% BUPIVACAINE WITH EPINEPHRINE)

REACTIONS (1)
  - Sinus arrest [Unknown]
